FAERS Safety Report 5107864-7 (Version None)
Quarter: 2006Q3

REPORT INFORMATION
  Report Type: 
  Country: None (occurrence: None)
  Receive Date: 20060919
  Receipt Date: 20060908
  Transmission Date: 20061208
  Serious: Yes (Other)
  Sender: FDA-Public Use
  Company Number: DE-JNJFOC-20060503336

PATIENT
  Sex: Male

DRUGS (5)
  1. RISPERDAL [Suspect]
     Indication: HALLUCINATION
     Route: 048
  2. RISPERDAL [Suspect]
     Indication: DELUSIONAL DISORDER, PERSECUTORY TYPE
     Route: 048
  3. TAVOR [Concomitant]
     Route: 048
  4. DICLOFENAC [Concomitant]
     Route: 048
  5. PANTOPRAZOL [Concomitant]
     Route: 048

REACTIONS (1)
  - NEUTROPHIL COUNT DECREASED [None]
